FAERS Safety Report 14655423 (Version 1)
Quarter: 2018Q1

REPORT INFORMATION
  Report Type: Spontaneous
  Country: AU (occurrence: AU)
  Receive Date: 20180319
  Receipt Date: 20180319
  Transmission Date: 20180509
  Serious: Yes (Other)
  Sender: FDA-Public Use
  Company Number: AU-ASTELLAS-2018US012520

PATIENT
  Age: 50 Year
  Sex: Female

DRUGS (4)
  1. ABATACEPT [Suspect]
     Active Substance: ABATACEPT
     Indication: SJOGREN^S SYNDROME
     Dosage: 450 MG, AT WEEKS 0, 2, AND, 4 AND MONTHLY THEREAFTER
     Route: 042
  2. HYDROXYCHLOROQUINE [Concomitant]
     Active Substance: HYDROXYCHLOROQUINE
     Indication: SJOGREN^S SYNDROME
     Dosage: UNK UNK, UNKNOWN FREQ.
     Route: 065
  3. PREDNISOLONE. [Concomitant]
     Active Substance: PREDNISOLONE
     Indication: SJOGREN^S SYNDROME
     Route: 065
  4. TACROLIMUS. [Suspect]
     Active Substance: TACROLIMUS
     Indication: SJOGREN^S SYNDROME
     Route: 048

REACTIONS (5)
  - Parotid gland enlargement [Recovering/Resolving]
  - Off label use [Unknown]
  - Sjogren^s syndrome [Recovering/Resolving]
  - Fatigue [Recovering/Resolving]
  - Acarodermatitis [Recovering/Resolving]
